FAERS Safety Report 5451831-0 (Version None)
Quarter: 2007Q3

REPORT INFORMATION
  Report Type: 
  Country: None (occurrence: None)
  Receive Date: 20070912
  Receipt Date: 20070829
  Transmission Date: 20080115
  Serious: Yes (Life-Threatening)
  Sender: FDA-Public Use
  Company Number: 160727ISR

PATIENT
  Sex: Male

DRUGS (1)
  1. AMIKACIN [Suspect]

REACTIONS (1)
  - NEUTROPENIA [None]
